FAERS Safety Report 9564449 (Version 4)
Quarter: 2013Q4

REPORT INFORMATION
  Report Type: Spontaneous
  Country: US (occurrence: US)
  Receive Date: 20130930
  Receipt Date: 20131029
  Transmission Date: 20140711
  Serious: Yes (Life-Threatening, Hospitalization, Other)
  Sender: FDA-Public Use
  Company Number: ES-009507513-0702USA04419

PATIENT
  Age: 74 Year
  Sex: Male
  Weight: 98.88 kg

DRUGS (20)
  1. JANUVIA [Suspect]
     Indication: DIABETES MELLITUS INADEQUATE CONTROL
     Dosage: 100 MG, QD
     Route: 048
     Dates: start: 20061027, end: 20061120
  2. JANUVIA [Suspect]
     Dosage: 50 MG, QD
     Route: 048
     Dates: start: 20061120, end: 20061204
  3. JANUVIA [Suspect]
     Dosage: 100 MG, QD
     Route: 048
     Dates: start: 20061205, end: 20061225
  4. ZOCOR [Interacting]
     Indication: HYPERLIPIDAEMIA
     Dosage: 80 MG, QD
     Route: 048
     Dates: start: 200608, end: 20061226
  5. ZOCOR [Interacting]
     Dosage: 40 MG, QD
     Route: 048
     Dates: end: 200608
  6. ZETIA [Suspect]
     Indication: HYPERLIPIDAEMIA
     Dosage: 10 MG, QD
     Route: 048
     Dates: start: 200608, end: 20061226
  7. AMIODARONE [Suspect]
     Dosage: 200 MG, QOD
  8. OLMESARTAN MEDOXOMIL [Concomitant]
     Indication: HYPERTENSION
     Dosage: 20 MG, QD
     Route: 048
     Dates: end: 20061226
  9. OLMESARTAN MEDOXOMIL [Concomitant]
     Indication: RENAL FAILURE CHRONIC
  10. MK-0157 [Concomitant]
     Indication: CARDIAC FAILURE CONGESTIVE
     Dosage: 10 MG, QD
     Route: 048
     Dates: end: 200612
  11. INSULIN, BIPHASIC ISOPHANE [INJECTION] [Concomitant]
     Dosage: 30 U, UNK
  12. ASPIRIN [Concomitant]
     Dosage: 81 MG, QD
  13. CARVEDILOL [Concomitant]
     Dosage: 6.25 MG, BID
  14. GLIPIZIDE [Concomitant]
     Dosage: 10/5
  15. LEVOTHYROXINE SODIUM [Concomitant]
     Dosage: 50 ?G, QD
     Route: 048
  16. METOLAZONE [Concomitant]
     Dosage: 7 DF, QD
     Dates: end: 200612
  17. CLOPIDOGREL BISULFATE [Concomitant]
     Dosage: 75 MG, QD
  18. K-DUR [Concomitant]
     Dosage: 40 MEQ, UNK
     Route: 048
  19. K-DUR [Concomitant]
     Dosage: 60 MEQ, UNK
     Route: 048
  20. TERAZOSIN HYDROCHLORIDE [Concomitant]
     Dosage: 10 MG, QD

REACTIONS (9)
  - Rhabdomyolysis [Recovered/Resolved]
  - Renal failure acute [Recovered/Resolved]
  - Drug interaction [Recovered/Resolved]
  - Asthenia [Recovering/Resolving]
  - Blood potassium increased [Recovered/Resolved]
  - Decreased appetite [Unknown]
  - Diabetes mellitus inadequate control [Unknown]
  - Gait disturbance [Recovering/Resolving]
  - Pain in extremity [Recovering/Resolving]
